FAERS Safety Report 11998733 (Version 1)
Quarter: 2016Q1

REPORT INFORMATION
  Report Type: Spontaneous
  Country: US (occurrence: None)
  Receive Date: 20160203
  Receipt Date: 20160203
  Transmission Date: 20160526
  Serious: Yes (Disabling)
  Sender: FDA-Public Use
  Company Number: None

PATIENT
  Age: 77 Year
  Sex: Female

DRUGS (14)
  1. SINGULAIR [Concomitant]
     Active Substance: MONTELUKAST SODIUM
  2. TYLENOL [Concomitant]
     Active Substance: ACETAMINOPHEN
  3. PRADAXA [Concomitant]
     Active Substance: DABIGATRAN ETEXILATE MESYLATE
  4. ZANTAC [Concomitant]
     Active Substance: RANITIDINE HYDROCHLORIDE
  5. MULTIVITAMIN -D [Concomitant]
  6. ATACAND [Concomitant]
     Active Substance: CANDESARTAN CILEXETIL
  7. CARDIZEM [Concomitant]
     Active Substance: DILTIAZEM HYDROCHLORIDE
  8. FLECAINIDE [Concomitant]
     Active Substance: FLECAINIDE
  9. AMBIEN [Concomitant]
     Active Substance: ZOLPIDEM TARTRATE
  10. CALCIUM [Concomitant]
     Active Substance: CALCIUM
  11. ASPIRIN. [Concomitant]
     Active Substance: ASPIRIN
  12. CRESTOR [Concomitant]
     Active Substance: ROSUVASTATIN CALCIUM
  13. FLOVENT [Concomitant]
     Active Substance: FLUTICASONE PROPIONATE
  14. PROLIA [Suspect]
     Active Substance: DENOSUMAB
     Indication: OSTEOPOROSIS
     Dosage: EVERY 6 MOS
     Dates: start: 20151222

REACTIONS (2)
  - Gait disturbance [None]
  - Pain in extremity [None]

NARRATIVE: CASE EVENT DATE: 20160122
